FAERS Safety Report 8045038-0 (Version None)
Quarter: 2012Q1

REPORT INFORMATION
  Report Type: 
  Country: None (occurrence: None)
  Receive Date: 20120113
  Receipt Date: 20120110
  Transmission Date: 20120608
  Serious: Yes (Life-Threatening, Hospitalization, Other)
  Sender: FDA-Public Use
  Company Number: PHEH2011US010652

PATIENT
  Sex: Female

DRUGS (7)
  1. METOPROLOL [Concomitant]
  2. FERROUS SULFATE TAB [Concomitant]
  3. PLAVIX [Concomitant]
  4. CRESTOR [Concomitant]
  5. GILENYA [Suspect]
     Indication: MULTIPLE SCLEROSIS
     Dosage: 0.5 MG, QD
     Route: 048
     Dates: start: 20101129
  6. HYDROCODONE BITARTRATE [Concomitant]
  7. ASPIRIN [Concomitant]

REACTIONS (7)
  - CHEST DISCOMFORT [None]
  - NAUSEA [None]
  - HYPERHIDROSIS [None]
  - ANGINA PECTORIS [None]
  - MYOCARDIAL INFARCTION [None]
  - DYSPNOEA [None]
  - VOMITING [None]
